FAERS Safety Report 6694829-7 (Version None)
Quarter: 2010Q2

REPORT INFORMATION
  Report Type: 
  Country: None (occurrence: None)
  Receive Date: 20100423
  Receipt Date: 20100412
  Transmission Date: 20101027
  Serious: Yes (Hospitalization, Other)
  Sender: FDA-Public Use
  Company Number: US-ELI_LILLY_AND_COMPANY-US201004003226

PATIENT
  Age: 59 Year
  Sex: Female

DRUGS (9)
  1. ALIMTA [Suspect]
     Indication: NON-SMALL CELL LUNG CANCER
     Dosage: 900 MG, OTHER
     Dates: start: 20100301, end: 20100301
  2. ALIMTA [Suspect]
     Dosage: 800 MG, OTHER
     Dates: start: 20100322
  3. FOLIC ACID [Concomitant]
  4. METOPROLOL TARTRATE [Concomitant]
  5. DIOVAN [Concomitant]
  6. LIPITOR [Concomitant]
  7. VESICARE [Concomitant]
  8. COMPAZINE [Concomitant]
     Dosage: UNK, AS NEEDED
  9. ZOFRAN [Concomitant]
     Dosage: UNK, AS NEEDED

REACTIONS (7)
  - COLITIS ISCHAEMIC [None]
  - DEHYDRATION [None]
  - DRUG HYPERSENSITIVITY [None]
  - HYPOCALCAEMIA [None]
  - HYPOKALAEMIA [None]
  - NAUSEA [None]
  - VOMITING [None]
